FAERS Safety Report 6445246-6 (Version None)
Quarter: 2009Q4

REPORT INFORMATION
  Report Type: 
  Country: None (occurrence: None)
  Receive Date: 20091118
  Receipt Date: 20091109
  Transmission Date: 20100525
  Serious: Yes (Hospitalization)
  Sender: FDA-Public Use
  Company Number: JP-JNJFOC-20091103315

PATIENT
  Sex: Male
  Weight: 59.5 kg

DRUGS (1)
  1. FENTANYL-100 [Suspect]
     Indication: POST HERPETIC NEURALGIA
     Route: 062

REACTIONS (3)
  - DECREASED APPETITE [None]
  - HYPERHIDROSIS [None]
  - PALPITATIONS [None]
